FAERS Safety Report 15026786 (Version 2)
Quarter: 2018Q2

REPORT INFORMATION
  Report Type: Spontaneous
  Country: JP (occurrence: JP)
  Receive Date: 20180619
  Receipt Date: 20180629
  Transmission Date: 20180711
  Serious: Yes (Other)
  Sender: FDA-Public Use
  Company Number: JP-SUN PHARMACEUTICAL INDUSTRIES LTD-2018RR-175964

PATIENT
  Age: 51 Year
  Sex: Male
  Weight: 65 kg

DRUGS (14)
  1. REMIFENTANIL [Concomitant]
     Active Substance: REMIFENTANIL
     Indication: ANAESTHESIA
     Dosage: 0.5 UG/KG/MIN
     Route: 042
  2. ROPIVACAINE [Concomitant]
     Active Substance: ROPIVACAINE
     Indication: ANALGESIC THERAPY
     Dosage: 60 ML OF 0.3% ROPIVACAINE
     Route: 065
  3. LIDOCAINE. [Concomitant]
     Active Substance: LIDOCAINE
     Indication: ANALGESIC THERAPY
     Dosage: 20 ML OF 1% LIDOCAINE
     Route: 065
  4. ANAGLIPTIN [Concomitant]
     Active Substance: ANAGLIPTIN
     Indication: DIABETES MELLITUS
     Dosage: 400 MG, DAILY
     Route: 065
  5. LEVETIRACETAM. [Suspect]
     Active Substance: LEVETIRACETAM
     Indication: EPILEPSY
     Dosage: 1000 MG, DAILY
     Route: 065
  6. MANITOL [Suspect]
     Active Substance: MANNITOL
     Indication: PRODUCT USED FOR UNKNOWN INDICATION
     Dosage: 200 ML OF 20% MANITOL
     Route: 042
  7. GLIMEPIRIDE. [Concomitant]
     Active Substance: GLIMEPIRIDE
     Indication: DIABETES MELLITUS
     Dosage: 1 MG, DAILY
     Route: 065
  8. EPINEPHRINE. [Concomitant]
     Active Substance: EPINEPHRINE
     Indication: ANALGESIC THERAPY
     Dosage: 0.01%
     Route: 065
  9. PROPOFOL. [Concomitant]
     Active Substance: PROPOFOL
     Indication: ANAESTHESIA
     Dosage: 4 UG/ML
     Route: 042
  10. CARBAMAZEPINE. [Suspect]
     Active Substance: CARBAMAZEPINE
     Indication: EPILEPSY
     Dosage: 200 MG, DAILY
     Route: 065
  11. LEVETIRACETAM. [Suspect]
     Active Substance: LEVETIRACETAM
     Dosage: 2000 MG, DAILY
     Route: 065
  12. CARBAMAZEPINE. [Suspect]
     Active Substance: CARBAMAZEPINE
     Dosage: 400 MG, DAILY
     Route: 065
  13. HYDROCHLOROTHIAZIDE. [Suspect]
     Active Substance: HYDROCHLOROTHIAZIDE
     Indication: HYPERTENSION
     Dosage: 12.5 MG, DAILY
     Route: 065
  14. TELMISARTAN. [Concomitant]
     Active Substance: TELMISARTAN
     Indication: HYPERTENSION
     Dosage: 40 MG, DAILY
     Route: 065

REACTIONS (3)
  - Hyperkalaemia [Unknown]
  - Hyponatraemia [Unknown]
  - Drug ineffective [Unknown]
